FAERS Safety Report 4636177-2 (Version None)
Quarter: 2005Q2

REPORT INFORMATION
  Report Type: 
  Country: None (occurrence: None)
  Receive Date: 20050415
  Receipt Date: 20050405
  Transmission Date: 20051028
  Serious: Yes (Other)
  Sender: FDA-Public Use
  Company Number: PHEH2005US03980

PATIENT
  Age: 47 Year
  Sex: Male

DRUGS (2)
  1. TRILEPTAL [Suspect]
     Indication: VERTIGO
     Dosage: UNK, BID
     Route: 048
     Dates: start: 20050318, end: 20050301
  2. TRILEPTAL [Suspect]
     Dosage: 150 MG, TID
     Route: 048
     Dates: start: 20050325, end: 20050326

REACTIONS (3)
  - DROOLING [None]
  - FALL [None]
  - GRAND MAL CONVULSION [None]
